FAERS Safety Report 5814784-9 (Version None)
Quarter: 2008Q3

REPORT INFORMATION
  Report Type: 
  Country: None (occurrence: None)
  Receive Date: 20080715
  Receipt Date: 20080314
  Transmission Date: 20090109
  Serious: Yes (Death)
  Sender: FDA-Public Use
  Company Number: CLOF-1000218

PATIENT
  Sex: Male
  Weight: 68 kg

DRUGS (8)
  1. CLOFARABINE (CLOFARABINE) SOLUTION FOR INFUSION [Suspect]
     Indication: ACUTE MYELOID LEUKAEMIA
     Dosage: 40 MG/M2, QD, INTRAVENOUS
     Route: 042
     Dates: start: 20080206, end: 20080210
  2. CYTARABINE [Suspect]
     Indication: ACUTE MYELOID LEUKAEMIA
     Dosage: 1 G/M2, QD, INTRAVENOUS
     Route: 042
     Dates: start: 20080205, end: 20080209
  3. AMBISOME (CHOLESTEROL) [Concomitant]
  4. ACYCLOVIR [Concomitant]
  5. ALLOPURINOL [Concomitant]
  6. ONDANSETRON HCL [Concomitant]
  7. DOMPERIDONE (DOMPERIDONE) [Concomitant]
  8. OMEPRAZOLE [Concomitant]

REACTIONS (1)
  - NO THERAPEUTIC RESPONSE [None]
